FAERS Safety Report 25914097 (Version 2)
Quarter: 2025Q4

REPORT INFORMATION
  Report Type: Spontaneous
  Country: CA (occurrence: CA)
  Receive Date: 20251013
  Receipt Date: 20251210
  Transmission Date: 20260118
  Serious: Yes (Other)
  Sender: PFIZER
  Company Number: CA-PFIZER INC-202500055706

PATIENT
  Age: 18 Year
  Sex: Male

DRUGS (1)
  1. ABRILADA [Suspect]
     Active Substance: ADALIMUMAB-AFZB
     Indication: Crohn^s disease
     Dosage: 40 MG EVERY 2 WEEKS (WEEK 0 160MG AND WEEK 2 80MG)
     Route: 058
     Dates: start: 20250307

REACTIONS (4)
  - Limb injury [Unknown]
  - Drug level decreased [Unknown]
  - Back disorder [Recovered/Resolved]
  - Weight increased [Unknown]

NARRATIVE: CASE EVENT DATE: 20250101
